FAERS Safety Report 4659246-X (Version None)
Quarter: 2005Q2

REPORT INFORMATION
  Report Type: 
  Country: None (occurrence: None)
  Receive Date: 20050510
  Receipt Date: 20050503
  Transmission Date: 20051028
  Serious: Yes (Death, Other)
  Sender: FDA-Public Use
  Company Number: 163-20785-05040112

PATIENT
  Age: 70 Year
  Sex: Female

DRUGS (1)
  1. THALOMID [Suspect]
     Indication: MULTIPLE MYELOMA
     Dosage: 150 MG, QHS, ORAL
     Route: 048
     Dates: start: 20040801, end: 20050101

REACTIONS (2)
  - CARDIAC DISORDER [None]
  - COMA [None]
